FAERS Safety Report 4448653-6 (Version None)
Quarter: 2004Q3

REPORT INFORMATION
  Report Type: 
  Country: None (occurrence: None)
  Receive Date: 20040730
  Receipt Date: 20030929
  Transmission Date: 20050211
  Serious: Yes (Hospitalization)
  Sender: FDA-Public Use
  Company Number: 2003-09-3436

PATIENT
  Age: 74 Year
  Sex: Male
  Weight: 98.4306 kg

DRUGS (7)
  1. INTRON A [Suspect]
     Indication: MALIGNANT MELANOMA
     Dosage: 10 MU TIW SUBCUTANEOUS
     Route: 058
     Dates: start: 20030826, end: 20030926
  2. ADALAT [Concomitant]
  3. LEVOXYL [Concomitant]
  4. METOPROLOL [Concomitant]
  5. COUMADIN [Concomitant]
  6. FOLIC ACID [Concomitant]
  7. IRON [Concomitant]

REACTIONS (6)
  - CELLULITIS [None]
  - CHILLS [None]
  - CONFUSIONAL STATE [None]
  - NAUSEA [None]
  - PYREXIA [None]
  - VOMITING [None]
